FAERS Safety Report 4677810-9 (Version None)
Quarter: 2005Q2

REPORT INFORMATION
  Report Type: 
  Country: None (occurrence: None)
  Receive Date: 20050527
  Receipt Date: 20050304
  Transmission Date: 20051028
  Serious: Yes (Life-Threatening, Hospitalization)
  Sender: FDA-Public Use
  Company Number: 213444

PATIENT
  Age: 55 Year
  Sex: Female
  Weight: 85.3 kg

DRUGS (5)
  1. RAPTIVA [Suspect]
     Indication: PSORIASIS
     Dosage: 0.8 ML, 1/WEEK, SUBCUTANEOUS
     Route: 058
     Dates: start: 20010101
  2. TRAZODONE (TRAZODONE HYDROCHLORIDE) [Concomitant]
  3. ALBUTEROL (ALBUTEROL, ALBUTEROL SULFATE) [Concomitant]
  4. RESTORIL [Concomitant]
  5. TOPICAL MEDICATIONS (GENERIC COMPONENT(S) NOT KNOWN) [Concomitant]

REACTIONS (6)
  - DIARRHOEA HAEMORRHAGIC [None]
  - ENCEPHALITIS [None]
  - LETHARGY [None]
  - MENTAL STATUS CHANGES [None]
  - PSORIASIS [None]
  - RENAL FAILURE [None]
